FAERS Safety Report 8858719 (Version 1)
Quarter: 2012Q4

REPORT INFORMATION
  Report Type: Spontaneous
  Country: US (occurrence: None)
  Receive Date: 20121023
  Receipt Date: 20121023
  Transmission Date: 20130627
  Serious: Yes (Other)
  Sender: FDA-Public Use
  Company Number: None

PATIENT
  Sex: Female
  Weight: 70.31 kg

DRUGS (1)
  1. PARADIGM INSULIN PUMP [Suspect]
     Dosage: 1 unot every hour IV bolus
     Route: 040
     Dates: start: 20090101, end: 20100910

REACTIONS (5)
  - Road traffic accident [None]
  - Device malfunction [None]
  - Incorrect dose administered by device [None]
  - Blood glucose decreased [None]
  - Loss of consciousness [None]
